FAERS Safety Report 16917970 (Version 1)
Quarter: 2019Q4

REPORT INFORMATION
  Report Type: Report from Study
  Country: US (occurrence: US)
  Receive Date: 20191015
  Receipt Date: 20191015
  Transmission Date: 20200122
  Serious: Yes (Other)
  Sender: FDA-Public Use
  Company Number: US-EMD SERONO-9121865

PATIENT
  Age: 46 Year
  Sex: Male

DRUGS (1)
  1. SEROSTIM [Suspect]
     Active Substance: SOMATROPIN
     Indication: CACHEXIA
     Dosage: SEROSTIM 4 MG MULTI DOSE 7-VIAL PACK
     Route: 058
     Dates: start: 20181228

REACTIONS (1)
  - Abdominal neoplasm [Unknown]

NARRATIVE: CASE EVENT DATE: 20190616
